FAERS Safety Report 7074622-6 (Version None)
Quarter: 2010Q4

REPORT INFORMATION
  Report Type: 
  Country: None (occurrence: None)
  Receive Date: 20101029
  Receipt Date: 20101021
  Transmission Date: 20110411
  Serious: Yes (Other)
  Sender: FDA-Public Use
  Company Number: A0888053A

PATIENT
  Age: 38 Year
  Sex: Male

DRUGS (2)
  1. LOVAZA [Suspect]
     Route: 048
     Dates: start: 20090101
  2. MULTIPLE MEDICATIONS [Concomitant]

REACTIONS (1)
  - LIVER FUNCTION TEST ABNORMAL [None]
